FAERS Safety Report 7723353-5 (Version None)
Quarter: 2011Q3

REPORT INFORMATION
  Report Type: 
  Country: None (occurrence: None)
  Receive Date: 20110901
  Receipt Date: 20110208
  Transmission Date: 20111222
  Serious: No
  Sender: FDA-Public Use
  Company Number: US-KINGPHARMUSA00001-K201100137

PATIENT
  Sex: Male

DRUGS (1)
  1. SONATA [Suspect]
     Dosage: UNK
     Route: 048

REACTIONS (2)
  - ADVERSE REACTION [None]
  - MIDDLE INSOMNIA [None]
